FAERS Safety Report 21646870 (Version 1)
Quarter: 2022Q4

REPORT INFORMATION
  Report Type: Report from Study
  Country: DE (occurrence: DE)
  Receive Date: 20221127
  Receipt Date: 20221127
  Transmission Date: 20230113
  Serious: Yes (Hospitalization, Other)
  Sender: FDA-Public Use
  Company Number: None

PATIENT
  Sex: Female

DRUGS (17)
  1. METHOTREXATE [Suspect]
     Active Substance: METHOTREXATE
     Indication: Rheumatoid arthritis
     Dosage: UNIT DOSE : 15 MG , ROUTE OF ADMINISTRATION : UNKNOWN ,  THERAPY END DATE : ASKU
     Route: 065
     Dates: start: 20151118
  2. METHOTREXATE [Suspect]
     Active Substance: METHOTREXATE
     Dosage: UNIT DOSE : 15 MG ROUTE OF ADMINISTRATION : UNKNOWN ,  THERAPY END DATE : ASKU
     Route: 065
     Dates: start: 20160211
  3. METHOTREXATE [Suspect]
     Active Substance: METHOTREXATE
     Dosage: UNIT DOSE : 15 MG ROUTE OF ADMINISTRATION : UNKNOWN . THERAPY END DATE : ASKU
     Route: 065
     Dates: start: 20160512
  4. METHOTREXATE [Suspect]
     Active Substance: METHOTREXATE
     Dosage: UNIT DOSE 15 MG ROUTE OF ADMINISTRATION : UNKNOWN . THERAPY END DATE : ASKU
     Route: 065
     Dates: start: 20161028
  5. METHOTREXATE [Suspect]
     Active Substance: METHOTREXATE
     Dosage: UNIT DOSE : 15 MG ROUTE OF ADMINISTRATION : UNKNOWN . THERAPY END DATE : ASKU
     Route: 065
     Dates: start: 20170524
  6. LEFLUNOMIDE [Suspect]
     Active Substance: LEFLUNOMIDE
     Indication: Rheumatoid arthritis
     Dosage: UNIT DOSE : 10 MG ROUTE OF ADMINISTRATION : UNKNOWN . THERAPY END DATE : ASKU
     Route: 065
     Dates: start: 20161028
  7. LEFLUNOMIDE [Suspect]
     Active Substance: LEFLUNOMIDE
     Dosage: UNIT DOSE : 10 MG ROUTE OF ADMINISTRATION : UNKNOWN . THERAPY END DATE : ASKU
     Route: 065
     Dates: start: 20160211
  8. LEFLUNOMIDE [Suspect]
     Active Substance: LEFLUNOMIDE
     Dosage: UNIT DOSE : 10 MG ROUTE OF ADMINISTRATION : UNKNOWN . THERAPY END DATE : ASKU
     Dates: start: 20160512
  9. LEFLUNOMIDE [Suspect]
     Active Substance: LEFLUNOMIDE
     Dosage: UNIT DOSE : 10 MG ROUTE OF ADMINISTRATION : UNKNOWN . THERAPY END DATE : ASKU
     Dates: start: 20170524
  10. HYDROXYCHLOROQUINE [Suspect]
     Active Substance: HYDROXYCHLOROQUINE
     Indication: Rheumatoid arthritis
     Dosage: UNIT DOSE : 200 MG ROUTE OF ADMINISTRATION : UNKNOWN . THERAPY END DATE : ASKU
     Route: 065
     Dates: start: 20151118
  11. HYDROXYCHLOROQUINE [Suspect]
     Active Substance: HYDROXYCHLOROQUINE
     Dosage: UNIT DOSE : 200 MG ROUTE OF ADMINISTRATION : UNKNOWN . THERAPY END DATE : ASKU
     Route: 065
     Dates: start: 20161028
  12. HYDROXYCHLOROQUINE [Suspect]
     Active Substance: HYDROXYCHLOROQUINE
     Dosage: UNIT DOSE : 200 MG ROUTE OF ADMINISTRATION : UNKNOWN . THERAPY END DATE : ASKU
     Route: 065
     Dates: start: 20160211
  13. BARICITINIB [Suspect]
     Active Substance: BARICITINIB
     Indication: Rheumatoid arthritis
     Dosage: UNK ROUTE OF ADMINISTRATION : UNKNOWN , DURATION : 7  MONTH
     Route: 065
     Dates: start: 201708, end: 201803
  14. SULFASALAZINE [Suspect]
     Active Substance: SULFASALAZINE
     Indication: Rheumatoid arthritis
     Dosage: UNIT DOSE : 500 MG ROUTE OF ADMINISTRATION : UNKNOWN . THERAPY END DATE : ASKU
     Route: 065
     Dates: start: 20160211
  15. SULFASALAZINE [Suspect]
     Active Substance: SULFASALAZINE
     Dosage: UNIT DOPSE : 500 MG ROUTE OF ADMINISTRATION : UNKNOWN .  THERAPY END DATE : ASKU
     Dates: start: 20151118
  16. TOCILIZUMAB [Suspect]
     Active Substance: TOCILIZUMAB
     Indication: Rheumatoid arthritis
     Dosage: UNIT DOSE : 162 MG ROUTE OF ADMINISTRATION : UNKNOWN .DURATION : 5 MONTH
     Route: 065
     Dates: start: 201702, end: 201707
  17. ERELZI [Suspect]
     Active Substance: ETANERCEPT-SZZS
     Indication: Rheumatoid arthritis
     Dosage: UNIT DOSE : 50 MG ROUTE OF ADMINISTRATION : UNKNOWN . THERAPY END DATE : ASKU
     Route: 065
     Dates: start: 201811

REACTIONS (12)
  - Lumbar vertebral fracture [Recovered/Resolved]
  - Rheumatoid arthritis [Recovered/Resolved]
  - Hypoglycaemia [Recovered/Resolved]
  - Fall [Recovered/Resolved]
  - Rib fracture [Recovered/Resolved]
  - Rheumatoid arthritis [Unknown]
  - Chronic obstructive pulmonary disease [Unknown]
  - Haemorrhoids [Not Recovered/Not Resolved]
  - Mucosal inflammation [Not Recovered/Not Resolved]
  - Abdominal discomfort [Unknown]
  - Transaminases increased [Unknown]
  - Weight decreased [Not Recovered/Not Resolved]

NARRATIVE: CASE EVENT DATE: 20161215
